FAERS Safety Report 4791043-7 (Version None)
Quarter: 2005Q4

REPORT INFORMATION
  Report Type: 
  Country: None (occurrence: None)
  Receive Date: 20051007
  Receipt Date: 20051004
  Transmission Date: 20060501
  Serious: Yes (Hospitalization)
  Sender: FDA-Public Use
  Company Number: US-JNJFOC-20050902116

PATIENT
  Sex: Male

DRUGS (3)
  1. ARESTIN [Suspect]
     Indication: PERIODONTITIS
     Route: 004
  2. DIABETES PILL [Concomitant]
  3. BLOOD PRESSURE MED [Concomitant]

REACTIONS (1)
  - LYMPHADENOPATHY [None]
